FAERS Safety Report 25493449 (Version 1)
Quarter: 2025Q2

REPORT INFORMATION
  Report Type: Spontaneous
  Country: CA (occurrence: CA)
  Receive Date: 20250630
  Receipt Date: 20250630
  Transmission Date: 20250717
  Serious: Yes (Other)
  Sender: MYLAN
  Company Number: CA-MYLANLABS-2025M1053990

PATIENT
  Sex: Female

DRUGS (8)
  1. ISOTRETINOIN [Suspect]
     Active Substance: ISOTRETINOIN
     Indication: Acne
  2. ISOTRETINOIN [Suspect]
     Active Substance: ISOTRETINOIN
     Route: 065
  3. ISOTRETINOIN [Suspect]
     Active Substance: ISOTRETINOIN
     Route: 065
  4. ISOTRETINOIN [Suspect]
     Active Substance: ISOTRETINOIN
  5. ACCUTANE [Suspect]
     Active Substance: ISOTRETINOIN
     Indication: Acne
  6. ACCUTANE [Suspect]
     Active Substance: ISOTRETINOIN
     Route: 065
  7. ACCUTANE [Suspect]
     Active Substance: ISOTRETINOIN
     Route: 065
  8. ACCUTANE [Suspect]
     Active Substance: ISOTRETINOIN

REACTIONS (11)
  - Colitis ulcerative [Unknown]
  - Condition aggravated [Unknown]
  - Dyspepsia [Unknown]
  - Decreased appetite [Unknown]
  - Face injury [Unknown]
  - Gastritis [Unknown]
  - Scar [Unknown]
  - Gastric haemorrhage [Unknown]
  - Acne [Unknown]
  - Alopecia [Unknown]
  - Drug ineffective [Unknown]
